FAERS Safety Report 4400658-7 (Version None)
Quarter: 2004Q3

REPORT INFORMATION
  Report Type: 
  Country: None (occurrence: None)
  Receive Date: 20040716
  Receipt Date: 20040716
  Transmission Date: 20050211
  Serious: No
  Sender: FDA-Public Use
  Company Number: None

PATIENT
  Age: 59 Year
  Sex: Male
  Weight: 75.45 kg

DRUGS (1)
  1. ZOMETA [Suspect]
     Indication: MULTIPLE MYELOMA
     Dosage: 4 MG Q MONTH X 12 DAYS
     Dates: start: 20030408, end: 20040201

REACTIONS (3)
  - ASEPTIC NECROSIS BONE [None]
  - JAW DISORDER [None]
  - OSTEOMYELITIS [None]
